FAERS Safety Report 4495013-8 (Version None)
Quarter: 2004Q4

REPORT INFORMATION
  Report Type: 
  Country: None (occurrence: None)
  Receive Date: 20041105
  Receipt Date: 20041105
  Transmission Date: 20050328
  Serious: Yes (Hospitalization)
  Sender: FDA-Public Use
  Company Number: None

PATIENT
  Age: 74 Year
  Sex: Female
  Weight: 90 kg

DRUGS (13)
  1. ALLOPURINOL [Suspect]
     Indication: GOUT
     Dosage: 300 MG DAILY
  2. BACTRIM DS [Suspect]
     Dosage: 1 TAB TWICE / DAY
  3. ALDACTONE [Concomitant]
  4. ATENOLOL [Concomitant]
  5. GLUCOPHAGE XR [Concomitant]
  6. CARDURA [Concomitant]
  7. ECOTRIN [Concomitant]
  8. GLYBURIDE [Concomitant]
  9. LASIX [Concomitant]
  10. NORVASC [Concomitant]
  11. ZYLOPRIM [Concomitant]
  12. TOFRANIL [Concomitant]
  13. POTASSIUM CHLORIDE [Concomitant]

REACTIONS (9)
  - ANOREXIA [None]
  - ASTHENIA [None]
  - BLOOD CREATININE INCREASED [None]
  - BLOOD UREA INCREASED [None]
  - CONFUSIONAL STATE [None]
  - DYSPNOEA [None]
  - GAIT DISTURBANCE [None]
  - LETHARGY [None]
  - LIVER FUNCTION TEST ABNORMAL [None]
